FAERS Safety Report 8203076-9 (Version None)
Quarter: 2012Q1

REPORT INFORMATION
  Report Type: 
  Country: None (occurrence: None)
  Receive Date: 20120312
  Receipt Date: 20120302
  Transmission Date: 20120608
  Serious: Yes (Other)
  Sender: FDA-Public Use
  Company Number: US-ASTRAZENECA-2011SE33789

PATIENT
  Age: 56 Year
  Sex: Female

DRUGS (4)
  1. OLIVE LEAF [Concomitant]
  2. ATACAND HCT [Suspect]
     Dosage: 32/12.5
     Route: 048
  3. HAWTHORN BERRY [Concomitant]
  4. GARLIC [Concomitant]

REACTIONS (3)
  - MIGRAINE WITH AURA [None]
  - DRUG DOSE OMISSION [None]
  - BLOOD PRESSURE INCREASED [None]
